FAERS Safety Report 8186475-3 (Version None)
Quarter: 2012Q1

REPORT INFORMATION
  Report Type: 
  Country: None (occurrence: None)
  Receive Date: 20120306
  Receipt Date: 20120227
  Transmission Date: 20120608
  Serious: Yes (Hospitalization)
  Sender: FDA-Public Use
  Company Number: US-US-EMD SERONO, INC.-7116295

PATIENT
  Sex: Female

DRUGS (2)
  1. REBIF [Suspect]
     Indication: RELAPSING-REMITTING MULTIPLE SCLEROSIS
     Route: 058
     Dates: start: 20111128
  2. ANTIDEPRESSANT [Concomitant]
     Indication: DEPRESSION

REACTIONS (3)
  - DEPRESSIVE SYMPTOM [None]
  - DIVERTICULITIS [None]
  - ANAEMIA [None]
